FAERS Safety Report 19580055 (Version 2)
Quarter: 2021Q3

REPORT INFORMATION
  Report Type: Report from Study
  Country: None (occurrence: US)
  Receive Date: 20210720
  Receipt Date: 20210805
  Transmission Date: 20211014
  Serious: Yes (Other)
  Sender: FDA-Public Use
  Company Number: US-ABBVIE-21K-163-3790083-00

PATIENT
  Age: 55 Year
  Sex: Female
  Weight: 83.99 kg

DRUGS (3)
  1. LEFLUNOMIDE. [Concomitant]
     Active Substance: LEFLUNOMIDE
     Indication: RHEUMATOID ARTHRITIS
     Route: 065
  2. HUMIRA [Suspect]
     Active Substance: ADALIMUMAB
     Dosage: CITRATE FREE
     Route: 058
     Dates: start: 202105
  3. HUMIRA [Suspect]
     Active Substance: ADALIMUMAB
     Indication: RHEUMATOID ARTHRITIS
     Dosage: CITRATE FREE
     Route: 058
     Dates: start: 20190424, end: 202105

REACTIONS (19)
  - Paraesthesia [Not Recovered/Not Resolved]
  - Osteoarthritis [Recovered/Resolved]
  - Grip strength decreased [Not Recovered/Not Resolved]
  - Nerve compression [Recovered/Resolved]
  - Disability [Not Recovered/Not Resolved]
  - Bone pain [Not Recovered/Not Resolved]
  - Fear of disease [Not Recovered/Not Resolved]
  - Pain in extremity [Not Recovered/Not Resolved]
  - Arthralgia [Not Recovered/Not Resolved]
  - Paraesthesia [Not Recovered/Not Resolved]
  - Therapeutic product effect incomplete [Not Recovered/Not Resolved]
  - Cyst [Recovered/Resolved]
  - Hypoaesthesia [Not Recovered/Not Resolved]
  - Hypoaesthesia [Not Recovered/Not Resolved]
  - Gait disturbance [Recovered/Resolved]
  - Musculoskeletal disorder [Not Recovered/Not Resolved]
  - Insomnia [Recovering/Resolving]
  - COVID-19 [Recovered/Resolved]
  - Meniscus injury [Not Recovered/Not Resolved]

NARRATIVE: CASE EVENT DATE: 2019
